FAERS Safety Report 5890141-4 (Version None)
Quarter: 2008Q3

REPORT INFORMATION
  Report Type: 
  Country: None (occurrence: None)
  Receive Date: 20080919
  Receipt Date: 20080909
  Transmission Date: 20090109
  Serious: Yes (Life-Threatening, Other)
  Sender: FDA-Public Use
  Company Number: GB-PFIZER INC-2008066319

PATIENT
  Sex: Male
  Weight: 78 kg

DRUGS (6)
  1. CARDURA XL [Suspect]
     Route: 048
     Dates: start: 20070110, end: 20080819
  2. LORAZEPAM [Concomitant]
     Indication: ANXIETY
     Route: 048
     Dates: start: 20001106
  3. ISTIN [Concomitant]
     Indication: HYPERTENSION
     Route: 048
     Dates: start: 20070731
  4. ALBUTEROL SPIROS [Concomitant]
     Indication: CHRONIC OBSTRUCTIVE PULMONARY DISEASE
     Route: 055
  5. SERETIDE [Concomitant]
     Indication: CHRONIC OBSTRUCTIVE PULMONARY DISEASE
     Route: 055
  6. SPIRIVA [Concomitant]
     Indication: CHRONIC OBSTRUCTIVE PULMONARY DISEASE
     Route: 055

REACTIONS (6)
  - CHOKING [None]
  - COUGH [None]
  - DYSPNOEA [None]
  - FOREIGN BODY TRAUMA [None]
  - HAEMOPTYSIS [None]
  - PHARYNGEAL HAEMORRHAGE [None]
